FAERS Safety Report 4889623-3 (Version None)
Quarter: 2006Q1

REPORT INFORMATION
  Report Type: 
  Country: None (occurrence: None)
  Receive Date: 20060124
  Receipt Date: 20050725
  Transmission Date: 20060701
  Serious: Yes (Life-Threatening, Hospitalization, Disabling)
  Sender: FDA-Public Use
  Company Number: JP-GLAXOSMITHKLINE-B0388850A

PATIENT
  Age: 72 Year
  Sex: Female

DRUGS (1)
  1. VALTREX [Suspect]
     Indication: HERPES ZOSTER
     Dosage: 1000MG THREE TIMES PER DAY
     Route: 048
     Dates: start: 20050718, end: 20050722

REACTIONS (4)
  - ANOREXIA [None]
  - HYPERKALAEMIA [None]
  - OLIGURIA [None]
  - RENAL FAILURE ACUTE [None]
